FAERS Safety Report 7657461-4 (Version None)
Quarter: 2011Q3

REPORT INFORMATION
  Report Type: 
  Country: None (occurrence: None)
  Receive Date: 20110804
  Receipt Date: 20110726
  Transmission Date: 20111222
  Serious: Yes (Other)
  Sender: FDA-Public Use
  Company Number: US-ASTRAZENECA-2011SE37115

PATIENT
  Age: 66 Year
  Sex: Male

DRUGS (1)
  1. NEXIUM [Suspect]
     Route: 048

REACTIONS (5)
  - SPINAL COLUMN INJURY [None]
  - BARRETT'S OESOPHAGUS [None]
  - BACK PAIN [None]
  - NECK PAIN [None]
  - ROAD TRAFFIC ACCIDENT [None]
